FAERS Safety Report 23396901 (Version 1)
Quarter: 2024Q1

REPORT INFORMATION
  Report Type: Spontaneous
  Country: US (occurrence: US)
  Receive Date: 20240112
  Receipt Date: 20240112
  Transmission Date: 20240409
  Serious: No
  Sender: FDA-Public Use
  Company Number: US-009507513-2312USA006259

PATIENT
  Age: 51 Year
  Sex: Female

DRUGS (3)
  1. PRIMAXIN IV [Suspect]
     Active Substance: CILASTATIN SODIUM\IMIPENEM
     Indication: Abdominal wall abscess
     Dosage: UNK
  2. AMIKACIN [Concomitant]
     Active Substance: AMIKACIN
     Indication: Abdominal wall abscess
  3. TIGECYCLINE [Concomitant]
     Active Substance: TIGECYCLINE
     Indication: Abdominal wall abscess
     Dosage: UNK

REACTIONS (5)
  - Tinnitus [Unknown]
  - Auditory disorder [Unknown]
  - Nausea [Unknown]
  - Abdominal pain [Unknown]
  - Product use in unapproved indication [Unknown]
